FAERS Safety Report 18081847 (Version 2)
Quarter: 2020Q3

REPORT INFORMATION
  Report Type: Report from Study
  Country: None (occurrence: US)
  Receive Date: 20200729
  Receipt Date: 20200827
  Transmission Date: 20201103
  Serious: Yes (Other)
  Sender: FDA-Public Use
  Company Number: US-ABBVIE-19K-163-3005227-00

PATIENT
  Age: 62 Year
  Sex: Female

DRUGS (1)
  1. HUMIRA [Suspect]
     Active Substance: ADALIMUMAB
     Indication: RHEUMATOID ARTHRITIS
     Dosage: CITRATE FREE
     Route: 058

REACTIONS (20)
  - Musculoskeletal stiffness [Unknown]
  - Drug ineffective [Unknown]
  - Neck surgery [Recovered/Resolved]
  - Tonsillitis [Unknown]
  - Injection site bruising [Unknown]
  - Arthralgia [Unknown]
  - Sinusitis [Unknown]
  - Ear pain [Unknown]
  - Cholecystectomy [Recovering/Resolving]
  - Depression [Unknown]
  - Pneumonia [Unknown]
  - Needle issue [Unknown]
  - Nerve compression [Unknown]
  - Arthritis [Unknown]
  - Nausea [Unknown]
  - Pain in extremity [Unknown]
  - Irritable bowel syndrome [Unknown]
  - Memory impairment [Unknown]
  - Back pain [Unknown]
  - Pain [Unknown]

NARRATIVE: CASE EVENT DATE: 2019
